FAERS Safety Report 13727330 (Version 1)
Quarter: 2017Q3

REPORT INFORMATION
  Report Type: Other
  Country: GB (occurrence: JP)
  Receive Date: 20170706
  Receipt Date: 20170706
  Transmission Date: 20171127
  Serious: Yes (Hospitalization, Other)
  Sender: FDA-Public Use
  Company Number: JP-INTERNATIONAL MEDICATION SYSTEMS, LIMITED-2023041

PATIENT
  Age: 79 Year
  Sex: Male

DRUGS (7)
  1. MAGNESIUM SULFATE. [Suspect]
     Active Substance: MAGNESIUM SULFATE
  2. ROCURONIUM [Suspect]
     Active Substance: ROCURONIUM BROMIDE
  3. DIAZEPAM. [Suspect]
     Active Substance: DIAZEPAM
  4. MIDAZOLAM [Suspect]
     Active Substance: MIDAZOLAM HYDROCHLORIDE
  5. MORPHINE [Suspect]
     Active Substance: MORPHINE
     Indication: MUSCLE SPASMS
  6. DANTROLENE SODIUM. [Suspect]
     Active Substance: DANTROLENE SODIUM
  7. PROPOFOL. [Suspect]
     Active Substance: PROPOFOL

REACTIONS (2)
  - Hypoventilation [Recovering/Resolving]
  - Cheyne-Stokes respiration [Unknown]
